FAERS Safety Report 11531391 (Version 1)
Quarter: 2015Q3

REPORT INFORMATION
  Report Type: Spontaneous
  Country: US (occurrence: US)
  Receive Date: 20150921
  Receipt Date: 20150921
  Transmission Date: 20151125
  Serious: Yes (Other)
  Sender: FDA-Public Use
  Company Number: US-TAKEDA-TPA2013A05765

PATIENT

DRUGS (4)
  1. ACTOS [Suspect]
     Active Substance: PIOGLITAZONE HYDROCHLORIDE
     Indication: TYPE 2 DIABETES MELLITUS
     Dosage: 45 MG, UNK
     Route: 048
     Dates: start: 2002, end: 20071210
  2. GLIPIZIDE ER [Concomitant]
     Active Substance: GLIPIZIDE
     Dosage: UNK
     Dates: start: 2006
  3. FORTAMET [Concomitant]
     Active Substance: METFORMIN HYDROCHLORIDE
     Dosage: 15 MG, UNK
  4. ACTOS [Suspect]
     Active Substance: PIOGLITAZONE HYDROCHLORIDE
     Dosage: 45 MG, UNK
     Route: 048
     Dates: start: 1999

REACTIONS (1)
  - Bladder cancer [Unknown]

NARRATIVE: CASE EVENT DATE: 20061207
